FAERS Safety Report 4493944-6 (Version None)
Quarter: 2004Q4

REPORT INFORMATION
  Report Type: 
  Country: None (occurrence: None)
  Receive Date: 20041102
  Receipt Date: 20041102
  Transmission Date: 20050328
  Serious: Yes (Other)
  Sender: FDA-Public Use
  Company Number: None

PATIENT
  Age: 64 Year
  Sex: Female
  Weight: 43.0917 kg

DRUGS (2)
  1. LEVAQUIN [Suspect]
     Indication: URINARY TRACT INFECTION
     Dosage: 1 A DAY ORALLY
     Route: 048
     Dates: start: 20040623, end: 20040625
  2. LEVAQUIN [Suspect]
     Indication: URINARY TRACT INFECTION
     Dosage: 1 A DAY ORALLY
     Route: 048
     Dates: start: 20040815, end: 20040816

REACTIONS (11)
  - BODY TEMPERATURE DECREASED [None]
  - BURNING SENSATION [None]
  - CHILLS [None]
  - DEPRESSION [None]
  - FATIGUE [None]
  - MUSCLE CRAMP [None]
  - PAIN [None]
  - SWOLLEN TONGUE [None]
  - TEMPERATURE INTOLERANCE [None]
  - TENDON DISORDER [None]
  - THROAT IRRITATION [None]
